FAERS Safety Report 8015316-X (Version None)
Quarter: 2011Q4

REPORT INFORMATION
  Report Type: 
  Country: None (occurrence: None)
  Receive Date: 20111230
  Receipt Date: 20111220
  Transmission Date: 20120403
  Serious: Yes (Hospitalization)
  Sender: FDA-Public Use
  Company Number: US-CELGENEUS-163-20785-11092226

PATIENT
  Sex: Male

DRUGS (20)
  1. FERROUS SULFATE TAB [Concomitant]
     Dosage: 15 MILLIGRAM/MILLILITERS
     Route: 048
  2. NORCO [Concomitant]
     Dosage: 5MG-325MG
     Route: 048
  3. PREDNISONE [Concomitant]
     Dosage: 20 MILLIGRAM
     Route: 048
     Dates: start: 20110427
  4. ENALAPRIL MALEATE [Concomitant]
     Dosage: 5 MILLIGRAM
     Route: 048
  5. AMLODIPINE [Concomitant]
     Dosage: 10 MILLIGRAM
     Route: 048
  6. IRON [Concomitant]
     Dosage: 27 MILLIGRAM
     Route: 048
  7. PROCRIT [Concomitant]
     Route: 065
  8. ACYCLOVIR [Concomitant]
     Dosage: 400 MILLIGRAM
     Route: 048
  9. ASPIRIN [Concomitant]
     Dosage: 81 MILLIGRAM
     Route: 048
  10. SYNTHROID [Concomitant]
     Dosage: 25 MICROGRAM
     Route: 048
  11. LEVAQUIN [Concomitant]
     Dosage: 500 MILLIEQUIVALENTS
     Route: 048
  12. PROMETHAZINE [Concomitant]
     Dosage: 25 MILLIGRAM
     Route: 048
  13. THALOMID [Suspect]
     Indication: MULTIPLE MYELOMA
     Dosage: 100 MILLIGRAM
     Route: 048
     Dates: start: 20110515, end: 20110101
  14. THALOMID [Suspect]
     Dosage: 150 MILLIGRAM
     Route: 048
     Dates: start: 20110701, end: 20110101
  15. MELPHALAN HYDROCHLORIDE [Concomitant]
     Dosage: 2 MILLIGRAM
     Route: 048
     Dates: start: 20110427
  16. KLOR-CON [Concomitant]
     Dosage: 10 MILLIEQUIVALENTS
     Route: 048
  17. MULTI-VITAMINS [Concomitant]
     Route: 048
  18. BACTRIM [Concomitant]
     Dosage: 400MG-80MG
     Route: 048
  19. PLAVIX [Concomitant]
     Dosage: 75 MILLIGRAM
     Route: 048
  20. DEXAMETHASONE [Concomitant]
     Dosage: 4 MILLIGRAM
     Route: 048

REACTIONS (3)
  - DIARRHOEA [None]
  - RESPIRATION ABNORMAL [None]
  - ANAEMIA [None]
